FAERS Safety Report 9812021 (Version 2)
Quarter: 2014Q4

REPORT INFORMATION
  Report Type: Spontaneous
  Country: US (occurrence: US)
  Receive Date: 20140110
  Receipt Date: 20141229
  Transmission Date: 20150529
  Serious: Yes (Other)
  Sender: FDA-Public Use
  Company Number: US-SANOFI-AVENTIS-2013SA068654

PATIENT
  Age: 80 Year
  Sex: Female

DRUGS (32)
  1. CALCIUM CARBONATE. [Concomitant]
     Active Substance: CALCIUM CARBONATE
     Route: 048
  2. TYLENOL [Concomitant]
     Active Substance: ACETAMINOPHEN
     Route: 048
  3. PLAVIX [Suspect]
     Active Substance: CLOPIDOGREL BISULFATE
     Indication: TRANSIENT ISCHAEMIC ATTACK
     Route: 065
     Dates: start: 201109, end: 201111
  4. DULCOLAX [Concomitant]
     Active Substance: BISACODYL OR DOCUSATE SODIUM
     Indication: CONSTIPATION
     Dosage: DOSE: 5 MG PO DAILY?DOSE: 10 MG PR Q8H
  5. ZOFRAN [Concomitant]
     Active Substance: ONDANSETRON HYDROCHLORIDE
     Dosage: ROUTE: IV PUSH
  6. ATENOLOL. [Concomitant]
     Active Substance: ATENOLOL
     Dosage: 1/2 QOD
     Dates: start: 20070312
  7. ACTONEL [Concomitant]
     Active Substance: RISEDRONATE SODIUM
     Dosage: 1 QWK.
     Dates: start: 20070111
  8. MINERALS NOS/VITAMINS NOS [Concomitant]
     Route: 048
  9. KENALOG [Concomitant]
     Active Substance: TRIAMCINOLONE ACETONIDE
     Route: 061
  10. CIPRO [Concomitant]
     Active Substance: CIPROFLOXACIN HYDROCHLORIDE
     Dates: start: 20090604
  11. GLUCOSAMINE [Concomitant]
     Active Substance: GLUCOSAMINE
     Dates: start: 20060627
  12. SOMA [Concomitant]
     Active Substance: CARISOPRODOL
     Dosage: FREQUENCY: QHS
     Route: 048
  13. PHENERGAN [Concomitant]
     Active Substance: PROMETHAZINE HYDROCHLORIDE
     Dosage: FREQUENCY: PR
  14. RESTORIL [Concomitant]
     Active Substance: TEMAZEPAM
     Dosage: FREQUENCY: QHS
     Route: 048
  15. METOCLOPRAMIDE HYDROCHLORIDE. [Concomitant]
     Active Substance: METOCLOPRAMIDE HYDROCHLORIDE
     Dates: start: 20070312
  16. FIBERCON [Concomitant]
     Active Substance: CALCIUM POLYCARBOPHIL
     Dates: start: 20060627
  17. NEURONTIN [Concomitant]
     Active Substance: GABAPENTIN
     Route: 048
  18. LISINOPRIL. [Concomitant]
     Active Substance: LISINOPRIL
     Route: 048
  19. NORCO [Concomitant]
     Active Substance: ACETAMINOPHEN\HYDROCODONE BITARTRATE
     Route: 048
  20. VICODIN [Concomitant]
     Active Substance: ACETAMINOPHEN\HYDROCODONE BITARTRATE
     Dosage: 2 EVERY 4 HOURS PRN
     Dates: start: 20060627
  21. METOPROLOL [Concomitant]
     Active Substance: METOPROLOL
     Route: 048
  22. SODIUM PHOSPHATE DIBASIC/SODIUM PHOSPHATE [Concomitant]
     Dosage: DOSE: 1 EA PR
  23. MIRALAX [Concomitant]
     Active Substance: POLYETHYLENE GLYCOL 3350
     Dosage: DOSE: 1 PACKET
     Route: 048
  24. NEURONTIN [Concomitant]
     Active Substance: GABAPENTIN
     Dates: start: 20070112
  25. ZINC/ASCORBIC ACID/COPPER/CYSTINE/MANGANESE/CALCIUM ASCORBATE/BETACAROTENE/TOCOPHEROL [Concomitant]
     Dates: start: 20030604
  26. MILK OF MAGNESIA [Concomitant]
     Active Substance: MAGNESIUM HYDROXIDE
     Route: 048
  27. IMODIUM [Concomitant]
     Active Substance: LOPERAMIDE HYDROCHLORIDE
     Dosage: 1-2 TABLETS
     Route: 048
  28. CALCIUM [Concomitant]
     Active Substance: CALCIUM
     Dates: start: 20030604
  29. CLINDAMYCIN [Concomitant]
     Active Substance: CLINDAMYCIN\CLINDAMYCIN PHOSPHATE
     Route: 048
  30. DILAUDID [Concomitant]
     Active Substance: HYDROMORPHONE HYDROCHLORIDE
     Dosage: DOSE: 1 MG IV PUSH Q2H, 2 MG PO Q4H
  31. ALL OTHER THERAPEUTIC PRODUCTS [Concomitant]
     Active Substance: UNSPECIFIED INGREDIENT
     Dosage: SODIUM CHLORIDE: 0.45% 1000 ML/ POTASSIUM CHLORIDE 20 MEQ 1000 ML?DOSE: 80 ML/HR
  32. INFLUENZA VACCINE [Concomitant]
     Active Substance: INFLUENZA VIRUS VACCINE
     Dosage: DOSE: 0.5 CC
     Dates: start: 20061107

REACTIONS (2)
  - Ulcer haemorrhage [Unknown]
  - Anaemia [Recovered/Resolved]

NARRATIVE: CASE EVENT DATE: 201111
